FAERS Safety Report 10573173 (Version 1)
Quarter: 2014Q4

REPORT INFORMATION
  Report Type: Spontaneous
  Country: GB (occurrence: GB)
  Receive Date: 20141110
  Receipt Date: 20141110
  Transmission Date: 20150529
  Serious: Yes (Hospitalization, Other)
  Sender: FDA-Public Use
  Company Number: GB-JNJFOC-20141101908

PATIENT
  Age: 47 Year
  Sex: Female

DRUGS (4)
  1. DEPIXOL LOW VOLUME [Suspect]
     Active Substance: FLUPENTIXOL DECANOATE
     Indication: SCHIZOPHRENIA
     Dosage: CUMULATIVE DOSE TO FIRST REACTION 5.71428571
     Route: 030
     Dates: start: 20140930, end: 201410
  2. DEPIXOL LOW VOLUME [Suspect]
     Active Substance: FLUPENTIXOL DECANOATE
     Indication: SCHIZOPHRENIA
     Dosage: CUMULATIVE DOSE TO FIRST REACTION 92.8571428
     Route: 030
     Dates: start: 20141014
  3. PARACETAMOL [Suspect]
     Active Substance: ACETAMINOPHEN
     Indication: SUICIDE ATTEMPT
     Route: 065
     Dates: start: 20141018, end: 20141018
  4. DEPIXOL LOW VOLUME [Suspect]
     Active Substance: FLUPENTIXOL DECANOATE
     Indication: SCHIZOPHRENIA
     Dosage: CUMULATIVE DOSE TO FIRST REACTION 22.8571428
     Route: 030
     Dates: start: 20140923, end: 201409

REACTIONS (3)
  - Liver disorder [Unknown]
  - Intentional overdose [Unknown]
  - Suicide attempt [Unknown]

NARRATIVE: CASE EVENT DATE: 201410
